FAERS Safety Report 6521924-5 (Version None)
Quarter: 2009Q4

REPORT INFORMATION
  Report Type: 
  Country: None (occurrence: None)
  Receive Date: 20091229
  Receipt Date: 20091229
  Transmission Date: 20100525
  Serious: Yes (Other)
  Sender: FDA-Public Use
  Company Number: None

PATIENT
  Sex: Male

DRUGS (6)
  1. GENTAMICIN [Suspect]
     Indication: ANTIBIOTIC PROPHYLAXIS
     Dosage: TOPICAL, ONCE
     Route: 061
     Dates: start: 20090925
  2. GENTAMICIN [Suspect]
     Indication: EYE INFECTION CHLAMYDIAL
     Dosage: TOPICAL, ONCE
     Route: 061
     Dates: start: 20090925
  3. GENTAMICIN [Suspect]
     Indication: EYE INFECTION GONOCOCCAL
     Dosage: TOPICAL, ONCE
     Route: 061
     Dates: start: 20090925
  4. HEPATITIS B VACCINE [Concomitant]
  5. M.V.I. [Concomitant]
  6. PHYTONADIONE [Concomitant]

REACTIONS (2)
  - APPLICATION SITE RASH [None]
  - APPLICATION SITE VESICLES [None]
